FAERS Safety Report 16273053 (Version 1)
Quarter: 2019Q2

REPORT INFORMATION
  Report Type: Spontaneous
  Country: IT (occurrence: IT)
  Receive Date: 20190506
  Receipt Date: 20190506
  Transmission Date: 20190711
  Serious: Yes (Hospitalization)
  Sender: FDA-Public Use
  Company Number: IT-TEVA-2019-IT-1046244

PATIENT
  Age: 62 Year
  Sex: Male

DRUGS (9)
  1. CARDIOASPIRIN [Concomitant]
     Active Substance: ASPIRIN
  2. VALSARTAN. [Suspect]
     Active Substance: VALSARTAN
     Indication: HYPERTENSION
     Route: 048
     Dates: start: 20190101, end: 20190320
  3. LUVION 50 MG COMPRESSE [Suspect]
     Active Substance: CANRENONE
     Indication: HYPERTENSION
     Route: 048
     Dates: start: 20190101, end: 20190320
  4. CETIRIZINA ABC [Concomitant]
  5. BRUFEN [Concomitant]
     Active Substance: IBUPROFEN
  6. LYRICA [Concomitant]
     Active Substance: PREGABALIN
  7. CARDURA [Concomitant]
     Active Substance: DOXAZOSIN MESYLATE
  8. LOBIVON [Concomitant]
     Active Substance: NEBIVOLOL HYDROCHLORIDE
  9. FUROSEMIDE. [Concomitant]
     Active Substance: FUROSEMIDE

REACTIONS (2)
  - Hyperkalaemia [Unknown]
  - Nodal rhythm [Unknown]

NARRATIVE: CASE EVENT DATE: 20190320
